FAERS Safety Report 23751878 (Version 1)
Quarter: 2024Q2

REPORT INFORMATION
  Report Type: Spontaneous
  Country: FR (occurrence: FR)
  Receive Date: 20240417
  Receipt Date: 20240417
  Transmission Date: 20240716
  Serious: Yes (Other)
  Sender: FDA-Public Use
  Company Number: None

PATIENT
  Age: 67 Year
  Sex: Male
  Weight: 77 kg

DRUGS (19)
  1. ONDANSETRON [Suspect]
     Active Substance: ONDANSETRON
     Indication: Prophylaxis of nausea and vomiting
     Route: 048
     Dates: start: 20240212, end: 20240213
  2. CHLORPROMAZINE [Suspect]
     Active Substance: CHLORPROMAZINE
     Indication: Prophylaxis of nausea and vomiting
     Route: 048
     Dates: start: 20240212, end: 20240213
  3. METOCLOPRAMIDE [Suspect]
     Active Substance: METOCLOPRAMIDE
     Indication: Prophylaxis of nausea and vomiting
     Route: 048
     Dates: start: 20240212, end: 20240213
  4. ADRIAMYCIN [Suspect]
     Active Substance: DOXORUBICIN HYDROCHLORIDE
     Indication: Liposarcoma
     Dosage: CYCLIC, ADRIAMYCINE  LYOPHILISATE AND SOLUTION FOR PARENTERAL USE, INFUSION
     Route: 042
     Dates: start: 20240212, end: 20240213
  5. OLANZAPINE [Suspect]
     Active Substance: OLANZAPINE
     Indication: Prophylaxis of nausea and vomiting
     Route: 048
     Dates: start: 20240212, end: 20240213
  6. VITAMIN B1 [Suspect]
     Active Substance: THIAMINE HYDROCHLORIDE
     Indication: Vitamin supplementation
     Dosage: VITAMINE B1
     Route: 048
     Dates: start: 20240212, end: 20240213
  7. CLOBAZAM [Concomitant]
     Active Substance: CLOBAZAM
     Indication: Product used for unknown indication
     Dosage: TIME INTERVAL: TOTAL
     Route: 048
     Dates: start: 20240212, end: 20240212
  8. ALIZAPRIDE [Suspect]
     Active Substance: ALIZAPRIDE
     Indication: Product used for unknown indication
     Route: 065
     Dates: start: 20240212, end: 20240213
  9. VITAMIN B6 [Suspect]
     Active Substance: PYRIDOXINE HYDROCHLORIDE
     Indication: Vitamin supplementation
     Route: 048
     Dates: start: 20240212, end: 20240213
  10. KARDEGIC [Concomitant]
     Active Substance: ASPIRIN DL-LYSINE
     Indication: Product used for unknown indication
     Dosage: POWDER FOR ORAL SOLUTION IN SACHET-DOSE
     Route: 048
  11. METHYLENE BLUE [Suspect]
     Active Substance: METHYLENE BLUE
     Indication: Encephalopathy
     Route: 042
     Dates: start: 20240214, end: 20240214
  12. METHYLENE BLUE [Suspect]
     Active Substance: METHYLENE BLUE
     Indication: Encephalopathy
     Dosage: CHLORURE DE METHYLTHIONINIUM
     Route: 042
     Dates: start: 20240212, end: 20240213
  13. METHYLENE BLUE [Suspect]
     Active Substance: METHYLENE BLUE
     Indication: Encephalopathy
     Route: 042
     Dates: start: 20240215, end: 20240216
  14. BACTRIM [Concomitant]
     Active Substance: SULFAMETHOXAZOLE\TRIMETHOPRIM
     Indication: Product used for unknown indication
     Dosage: 3 TIMES A WEEK
     Route: 065
  15. METHYLPREDNISOLONE ACETATE [Suspect]
     Active Substance: METHYLPREDNISOLONE ACETATE
     Indication: Chemotherapy side effect prophylaxis
     Dosage: ACETATE DE METHYLPREDNISOLONE
     Route: 048
     Dates: start: 20240212, end: 20240213
  16. LOVENOX [Suspect]
     Active Substance: ENOXAPARIN SODIUM
     Indication: Thrombosis prophylaxis
     Dosage: 4,000 IU ANTI-XA/0.4 ML
     Route: 058
     Dates: start: 20240212, end: 20240213
  17. FUROSEMIDE [Suspect]
     Active Substance: FUROSEMIDE
     Indication: Fluid retention
     Route: 048
     Dates: start: 20240212, end: 20240213
  18. MESNA [Suspect]
     Active Substance: MESNA
     Indication: Prophylaxis
     Dosage: CYCLIC
     Route: 042
     Dates: start: 20240212, end: 20240213
  19. IFOSFAMIDE [Suspect]
     Active Substance: IFOSFAMIDE
     Indication: Liposarcoma
     Dosage: LYOPHILISATE FOR SOLUTION FOR INJECTION
     Route: 042
     Dates: start: 20240212, end: 20240213

REACTIONS (1)
  - Haemolytic anaemia [Recovered/Resolved]

NARRATIVE: CASE EVENT DATE: 20240220
